FAERS Safety Report 9443328 (Version 1)
Quarter: 2013Q3

REPORT INFORMATION
  Report Type: Spontaneous
  Country: US (occurrence: US)
  Receive Date: 20130806
  Receipt Date: 20130806
  Transmission Date: 20140515
  Serious: No
  Sender: FDA-Public Use
  Company Number: US-BAXTER-2013BAX025272

PATIENT
  Sex: 0

DRUGS (13)
  1. GAMMAGARD LIQUID [Suspect]
     Indication: BLINDNESS
     Dosage: 5 GRAMS IN 50 ML
     Route: 058
  2. GAMMAGARD LIQUID [Suspect]
     Indication: OFF LABEL USE
  3. AMBIEN [Concomitant]
     Indication: PRODUCT USED FOR UNKNOWN INDICATION
     Route: 065
  4. AMBIEN [Concomitant]
     Route: 065
  5. DOXYCYCLINE HYCLATE [Concomitant]
     Indication: PRODUCT USED FOR UNKNOWN INDICATION
     Route: 065
  6. LEVOTHYROXIN [Concomitant]
     Indication: PRODUCT USED FOR UNKNOWN INDICATION
     Route: 065
  7. LIOTHYRONINE [Concomitant]
     Indication: PRODUCT USED FOR UNKNOWN INDICATION
     Route: 065
  8. ONDANSETRON HCL [Concomitant]
     Indication: PRODUCT USED FOR UNKNOWN INDICATION
     Dosage: BEFORE INFUSIONS
     Route: 065
  9. COENZYME Q10 [Concomitant]
     Indication: MIGRAINE PROPHYLAXIS
     Route: 065
  10. DANDELION EXTRACT [Concomitant]
     Indication: PRODUCT USED FOR UNKNOWN INDICATION
     Dosage: 15 GTS/DAY
     Route: 065
  11. IONIZING MAGNESIUM CITRATE [Concomitant]
     Indication: PRODUCT USED FOR UNKNOWN INDICATION
     Dosage: 1 TEASPOON
     Route: 065
  12. CHASTE BERRY EXTRACT [Concomitant]
     Indication: PRODUCT USED FOR UNKNOWN INDICATION
     Dosage: 0.5% AGNUSIDES
     Route: 065
  13. XANAX [Concomitant]
     Indication: PRODUCT USED FOR UNKNOWN INDICATION
     Route: 065

REACTIONS (1)
  - Weight increased [Not Recovered/Not Resolved]
